FAERS Safety Report 24044722 (Version 2)
Quarter: 2024Q3

REPORT INFORMATION
  Report Type: Spontaneous
  Country: ES (occurrence: ES)
  Receive Date: 20240703
  Receipt Date: 20240727
  Transmission Date: 20241016
  Serious: Yes (Other)
  Sender: SANOFI AVENTIS
  Company Number: None

PATIENT
  Age: 45 Year
  Sex: Female

DRUGS (8)
  1. DUPIXENT [Suspect]
     Active Substance: DUPILUMAB
     Indication: Asthma
     Dosage: 300 MG, QOW
     Route: 058
     Dates: start: 20240216, end: 20240619
  2. NUCALA [Concomitant]
     Active Substance: MEPOLIZUMAB
     Dosage: UNK
     Dates: end: 2024
  3. RESLIZUMAB [Concomitant]
     Active Substance: RESLIZUMAB
     Dosage: UNK
  4. FLUTICASONE FUROATE\VILANTEROL TRIFENATATE [Concomitant]
     Active Substance: FLUTICASONE FUROATE\VILANTEROL TRIFENATATE
     Dosage: UNK
  5. MONTELUKAST [Concomitant]
     Active Substance: MONTELUKAST SODIUM
     Dosage: UNK
  6. MEPOLIZUMAB [Concomitant]
     Active Substance: MEPOLIZUMAB
     Dosage: 3 DOSES WERE ADMINISTERED
     Dates: start: 2021
  7. MEPOLIZUMAB [Concomitant]
     Active Substance: MEPOLIZUMAB
     Dosage: UNK
     Dates: start: 202404
  8. BENRALIZUMAB [Concomitant]
     Active Substance: BENRALIZUMAB
     Dosage: UNK

REACTIONS (1)
  - Vulvovaginal candidiasis [Recovering/Resolving]

NARRATIVE: CASE EVENT DATE: 20240217
